FAERS Safety Report 18881063 (Version 1)
Quarter: 2021Q1

REPORT INFORMATION
  Report Type: Spontaneous
  Country: US (occurrence: US)
  Receive Date: 20210212
  Receipt Date: 20210212
  Transmission Date: 20210420
  Serious: Yes (Hospitalization, Other)
  Sender: FDA-Public Use
  Company Number: US-MACLEODS PHARMACEUTICALS US LTD-MAC2021030108

PATIENT

DRUGS (4)
  1. METFORMIN [Suspect]
     Active Substance: METFORMIN HYDROCHLORIDE
     Dosage: 1000 MILLIGRAM, BID
     Route: 065
  2. DAPAGLIFLOZIN. [Suspect]
     Active Substance: DAPAGLIFLOZIN
     Indication: TYPE 2 DIABETES MELLITUS
     Dosage: 10 MILLIGRAM, QD
     Route: 065
  3. SEMAGLUTIDE [Concomitant]
     Active Substance: SEMAGLUTIDE
     Indication: TYPE 2 DIABETES MELLITUS
     Dosage: 1 MILLIGRAM, Q.W.
     Route: 058
  4. METFORMIN [Suspect]
     Active Substance: METFORMIN HYDROCHLORIDE
     Indication: TYPE 2 DIABETES MELLITUS
     Dosage: 1000 MILLIGRAM, BID
     Route: 065

REACTIONS (3)
  - Euglycaemic diabetic ketoacidosis [Recovering/Resolving]
  - Leukocytosis [Unknown]
  - Acute kidney injury [Recovered/Resolved]
